FAERS Safety Report 12174519 (Version 2)
Quarter: 2017Q2

REPORT INFORMATION
  Report Type: Spontaneous
  Country: US (occurrence: US)
  Receive Date: 20160312
  Receipt Date: 20170628
  Transmission Date: 20170830
  Serious: Yes (Hospitalization, Other)
  Sender: FDA-Public Use
  Company Number: US-BRISTOL-MYERS SQUIBB COMPANY-BMS-2016-015713

PATIENT
  Age: 40 Year
  Sex: Female

DRUGS (1)
  1. IPILIMUMAB [Suspect]
     Active Substance: IPILIMUMAB
     Indication: MALIGNANT MELANOMA
     Dosage: 10 MG/KG, Q3WK
     Route: 042

REACTIONS (4)
  - Hypopituitarism [Unknown]
  - Prescribed overdose [Unknown]
  - Lymphocytic hypophysitis [Unknown]
  - Disorder of orbit [Recovered/Resolved]
